FAERS Safety Report 5833816-5 (Version None)
Quarter: 2008Q3

REPORT INFORMATION
  Report Type: 
  Country: None (occurrence: None)
  Receive Date: 20080801
  Receipt Date: 20080718
  Transmission Date: 20090109
  Serious: Yes (Life-Threatening)
  Sender: FDA-Public Use
  Company Number: ADE 08056

PATIENT
  Sex: Male

DRUGS (11)
  1. POLYETHYLENE GLYCOL 3350 [Suspect]
     Indication: CONSTIPATION
     Dosage: 17 GM IN LIQUID/DAILY
     Dates: start: 20080527
  2. LOVASTATIN [Concomitant]
  3. MIRTAZAPINE [Concomitant]
  4. OXYCONTIN [Concomitant]
  5. OMEPRAZOLE [Concomitant]
  6. AMBIEN [Concomitant]
  7. DIAZEPAM [Concomitant]
  8. IMITREX [Concomitant]
  9. VERAPIMIL [Concomitant]
  10. CYCLOBENZAPRINE HCL [Concomitant]
  11. GABAPENTIN [Concomitant]

REACTIONS (2)
  - DYSPNOEA [None]
  - FOREIGN BODY TRAUMA [None]
